FAERS Safety Report 8076695-0 (Version None)
Quarter: 2012Q1

REPORT INFORMATION
  Report Type: 
  Country: None (occurrence: None)
  Receive Date: 20120127
  Receipt Date: 20120124
  Transmission Date: 20120608
  Serious: Yes (Death, Hospitalization)
  Sender: FDA-Public Use
  Company Number: FR-ABBOTT-11P-056-0882000-00

PATIENT
  Sex: Female
  Weight: 52 kg

DRUGS (11)
  1. HUMIRA [Suspect]
     Indication: RHEUMATOID ARTHRITIS
     Dates: start: 20100902, end: 20111129
  2. LEFLUNOMIDE [Concomitant]
     Indication: RHEUMATOID ARTHRITIS
     Dosage: 20 MG DAILY
     Route: 048
     Dates: start: 20081201
  3. LANSOPRAZOLE [Concomitant]
     Indication: ULCER
     Dosage: 15 MG DAILY
     Route: 048
  4. ARAVA [Concomitant]
     Indication: RHEUMATOID ARTHRITIS
  5. CALCIUM [Concomitant]
     Indication: OSTEOPOROSIS PROPHYLAXIS
     Dosage: ONE TABLET DAILY
     Route: 048
  6. PNEUMO 23 [Concomitant]
     Indication: PRODUCT USED FOR UNKNOWN INDICATION
     Dates: start: 20100101
  7. ENBREL [Concomitant]
     Indication: RHEUMATOID ARTHRITIS
     Dates: end: 20100201
  8. LANSOPRAZOLE [Concomitant]
     Indication: PROPHYLAXIS
  9. COLECALCIFEROL [Concomitant]
     Indication: OSTEOPOROSIS PROPHYLAXIS
     Dosage: ONE TO TWICE A MONTH
     Route: 048
  10. PREDNISONE TAB [Concomitant]
     Indication: RHEUMATOID ARTHRITIS
     Dosage: 5 MG DAILY
     Route: 048
     Dates: start: 19990101
  11. METHOTREXATE [Concomitant]
     Indication: RHEUMATOID ARTHRITIS

REACTIONS (4)
  - RENAL FAILURE [None]
  - MULTI-ORGAN FAILURE [None]
  - PNEUMOCOCCAL INFECTION [None]
  - SEPTIC SHOCK [None]
